FAERS Safety Report 9284895 (Version 1)
Quarter: 2013Q2

REPORT INFORMATION
  Report Type: Spontaneous
  Country: US (occurrence: US)
  Receive Date: 20130513
  Receipt Date: 20130513
  Transmission Date: 20140414
  Serious: No
  Sender: FDA-Public Use
  Company Number: US-009507513-1305USA002781

PATIENT
  Age: 24 Year
  Sex: Female

DRUGS (1)
  1. IMPLANON [Suspect]
     Indication: CONTRACEPTION
     Dosage: UNK, ONE ROD FOR THREE YEARS
     Route: 059
     Dates: start: 20080403

REACTIONS (6)
  - Nausea [Unknown]
  - Muscle spasms [Unknown]
  - Menstrual disorder [Unknown]
  - Dyspareunia [Unknown]
  - Coital bleeding [Unknown]
  - Incorrect drug administration duration [Unknown]
